FAERS Safety Report 5167415-8 (Version None)
Quarter: 2006Q4

REPORT INFORMATION
  Report Type: 
  Country: None (occurrence: None)
  Receive Date: 20061130
  Receipt Date: 20061117
  Transmission Date: 20070319
  Serious: Yes (Hospitalization)
  Sender: FDA-Public Use
  Company Number: 2006118688

PATIENT
  Sex: Male

DRUGS (11)
  1. LYRICA [Suspect]
     Indication: NEURALGIA
     Dosage: 350 MG, ORAL
     Route: 048
     Dates: start: 20050527
  2. FALITHROM (PHENPROCOUMON) [Concomitant]
  3. TOREM (TORASEMIDE) [Concomitant]
  4. DIGITOXIN TAB [Concomitant]
  5. METOPROLOL SUCCINATE [Concomitant]
  6. NEXIUM [Concomitant]
  7. VALSARTAN [Concomitant]
  8. ZOCOR [Concomitant]
  9. SIFROL (PRAMIPEXOLE DIHYDROCHLORIDE) [Concomitant]
  10. HUMAN MIXTARD (INSULIN HUMAN, INSULIN HUMAN INJECTION, ISOPHANE) [Concomitant]
  11. HEPARIN [Concomitant]

REACTIONS (8)
  - ARRHYTHMIA [None]
  - ASTHENIA [None]
  - CARDIAC PACEMAKER INSERTION [None]
  - DEVICE RELATED INFECTION [None]
  - DIZZINESS [None]
  - DYSPNOEA [None]
  - GENERAL PHYSICAL HEALTH DETERIORATION [None]
  - GENERALISED OEDEMA [None]
